FAERS Safety Report 5027672-5 (Version None)
Quarter: 2006Q2

REPORT INFORMATION
  Report Type: 
  Country: None (occurrence: None)
  Receive Date: 20060616
  Receipt Date: 20060609
  Transmission Date: 20061013
  Serious: Yes (Death, Other)
  Sender: FDA-Public Use
  Company Number: PHBS2006JP08702

PATIENT
  Age: 32 Year
  Sex: Female

DRUGS (6)
  1. CYCLOPHOSPHAMIDE [Concomitant]
     Dosage: 120 MG/KG/D
     Dates: start: 20000901
  2. CYTARABINE [Concomitant]
     Dosage: 12 G/M2/DAY
     Dates: start: 20000901
  3. NEUPOGEN [Concomitant]
     Dates: start: 20000901
  4. IRRADIATION [Concomitant]
     Dates: start: 20000901
  5. METHOTREXATE [Concomitant]
     Dosage: SHORT COURSE
  6. CYCLOSPORINE [Suspect]
     Indication: CORD BLOOD TRANSPLANT THERAPY

REACTIONS (7)
  - ACUTE MYELOID LEUKAEMIA RECURRENT [None]
  - ANTI-THYROID ANTIBODY [None]
  - BLOOD THYROID STIMULATING HORMONE DECREASED [None]
  - GRAFT VERSUS HOST DISEASE [None]
  - HYPERTHYROIDISM [None]
  - TACHYCARDIA [None]
  - THYROXINE FREE INCREASED [None]
